FAERS Safety Report 10095312 (Version 2)
Quarter: 2014Q2

REPORT INFORMATION
  Report Type: Spontaneous
  Country: JP (occurrence: JP)
  Receive Date: 20140422
  Receipt Date: 20140429
  Transmission Date: 20141212
  Serious: Yes (Hospitalization)
  Sender: FDA-Public Use
  Company Number: JP-B.I. PHARMACEUTICALS,INC./RIDGEFIELD-2014-BI-17961NB

PATIENT
  Age: 70 Year
  Sex: Male

DRUGS (14)
  1. SPIRIVA [Suspect]
     Indication: CHRONIC OBSTRUCTIVE PULMONARY DISEASE
     Dosage: 5 MCG
     Route: 055
  2. SPIRIVA [Suspect]
     Route: 065
     Dates: start: 20140411
  3. ADOAIR [Suspect]
     Indication: CHRONIC OBSTRUCTIVE PULMONARY DISEASE
     Route: 055
  4. ADOAIR [Suspect]
     Route: 065
     Dates: start: 20140411
  5. PLAVIX / CLOPIDOGREL SULFATE [Concomitant]
     Dosage: 75 MG
     Route: 048
  6. PARIET / SODIUM RABEPRAZOLE [Concomitant]
     Dosage: 10 MG
     Route: 048
  7. NIFEDIPINE L / NIFEDIPINE [Concomitant]
     Dosage: 40 MG
     Route: 048
  8. THEOLONG / THEOPHYLLINE [Concomitant]
     Dosage: 400 MG
     Route: 048
  9. CLARITH / CLARITHROMYCIN [Concomitant]
     Dosage: 400 MG
     Route: 065
  10. LASIX / FUROSEMIDE [Concomitant]
     Dosage: 20 MG
     Route: 065
  11. KIPRES / MONTELUKAST SODIUM [Concomitant]
     Dosage: 10 MG
     Route: 065
  12. METGLUCO / METFORMIN HYDROCHLORIDE [Concomitant]
     Dosage: 750 MG
     Route: 065
  13. VOGLIBOSE / VOGLIBOSE [Concomitant]
     Dosage: 0.9 MG
     Route: 065
  14. SYMBICORT / BUDESONIDE_FORMOTEROL FUMARATE HYDRATE [Concomitant]
     Route: 065

REACTIONS (2)
  - Asthenia [Unknown]
  - Dysgeusia [Recovered/Resolved]
